FAERS Safety Report 20610769 (Version 1)
Quarter: 2022Q1

REPORT INFORMATION
  Report Type: Spontaneous
  Country: US (occurrence: None)
  Receive Date: 20220317
  Receipt Date: 20220317
  Transmission Date: 20220423
  Serious: Yes (Other)
  Sender: FDA-Public Use
  Company Number: None

PATIENT
  Age: 24 Year
  Sex: Female
  Weight: 94.05 kg

DRUGS (6)
  1. INFUVITE ADULT [Suspect]
     Active Substance: .ALPHA.-TOCOPHEROL ACETATE\ASCORBIC ACID\BIOTIN\CHOLECALCIFEROL\CYANOCOBALAMIN\DEXPANTHENOL\FOLIC AC
     Indication: Dehydration
     Dosage: OTHER FREQUENCY : ONCE;?
     Route: 040
     Dates: start: 20220317, end: 20220317
  2. INFUVITE ADULT [Suspect]
     Active Substance: .ALPHA.-TOCOPHEROL ACETATE\ASCORBIC ACID\BIOTIN\CHOLECALCIFEROL\CYANOCOBALAMIN\DEXPANTHENOL\FOLIC AC
     Indication: Vomiting
  3. SODIUM CHLORIDE [Suspect]
     Active Substance: SODIUM CHLORIDE
     Indication: Dehydration
     Dosage: OTHER FREQUENCY : ONCE;?
     Route: 040
     Dates: start: 20220317, end: 20220317
  4. SODIUM CHLORIDE [Suspect]
     Active Substance: SODIUM CHLORIDE
     Indication: Vomiting
  5. Infuvite Adult Multiple Vitamins Injections [Concomitant]
     Dates: start: 20220317, end: 20220317
  6. SODIUM CHLORIDE [Concomitant]
     Active Substance: SODIUM CHLORIDE
     Dates: start: 20220317, end: 20220317

REACTIONS (3)
  - Infusion related reaction [None]
  - Throat tightness [None]
  - Flushing [None]

NARRATIVE: CASE EVENT DATE: 20220317
